FAERS Safety Report 5829040-2 (Version None)
Quarter: 2008Q3

REPORT INFORMATION
  Report Type: 
  Country: None (occurrence: None)
  Receive Date: 20080731
  Receipt Date: 20071102
  Transmission Date: 20090109
  Serious: No
  Sender: FDA-Public Use
  Company Number: US-BRISTOL-MYERS SQUIBB COMPANY-13967963

PATIENT
  Sex: Male

DRUGS (1)
  1. TEQUIN [Suspect]
     Indication: PROPHYLAXIS URINARY TRACT INFECTION
     Dates: start: 20060316, end: 20060920

REACTIONS (1)
  - BLOOD GLUCOSE FLUCTUATION [None]
